FAERS Safety Report 8908299 (Version 2)
Quarter: 2012Q4

REPORT INFORMATION
  Report Type: Report from Study
  Country: JP (occurrence: JP)
  Receive Date: 20121114
  Receipt Date: 20121217
  Transmission Date: 20130627
  Serious: Yes (Hospitalization)
  Sender: FDA-Public Use
  Company Number: JP-JNJFOC-20121105388

PATIENT
  Age: 76 Year
  Sex: Male
  Weight: 70 kg

DRUGS (16)
  1. GOLIMUMAB [Suspect]
     Indication: RHEUMATOID ARTHRITIS
     Route: 058
     Dates: start: 20120515
  2. GOLIMUMAB [Suspect]
     Indication: RHEUMATOID ARTHRITIS
     Route: 058
     Dates: start: 20120710
  3. GOLIMUMAB [Suspect]
     Indication: RHEUMATOID ARTHRITIS
     Route: 058
     Dates: start: 20120807
  4. GOLIMUMAB [Suspect]
     Indication: RHEUMATOID ARTHRITIS
     Route: 058
     Dates: start: 20120911
  5. GOLIMUMAB [Suspect]
     Indication: RHEUMATOID ARTHRITIS
     Route: 058
     Dates: start: 20121009
  6. GOLIMUMAB [Suspect]
     Indication: RHEUMATOID ARTHRITIS
     Route: 058
     Dates: start: 20120417
  7. METHOTREXATE [Concomitant]
     Indication: RHEUMATOID ARTHRITIS
     Dates: end: 20120610
  8. METHOTREXATE [Concomitant]
     Indication: RHEUMATOID ARTHRITIS
     Dates: start: 20120630
  9. FOLIAMIN [Concomitant]
     Indication: PROPHYLAXIS
  10. BONALON [Concomitant]
     Indication: OSTEOPOROSIS
  11. GLACTIV [Concomitant]
     Indication: DIABETES MELLITUS
     Route: 048
  12. ANTIHYPERTENSIVE [Concomitant]
     Indication: HYPERTENSION
     Route: 048
  13. ATELEC [Concomitant]
     Indication: HYPERTENSION
     Route: 048
  14. PLAVIX [Concomitant]
     Indication: ANGINA PECTORIS
     Route: 048
  15. URSO [Concomitant]
     Indication: CHOLECYSTITIS
     Route: 048
  16. IRBETAN [Concomitant]
     Indication: HYPERTENSION
     Route: 048

REACTIONS (1)
  - Cholecystitis [Recovered/Resolved]
